FAERS Safety Report 4616161-5 (Version None)
Quarter: 2005Q1

REPORT INFORMATION
  Report Type: 
  Country: None (occurrence: None)
  Receive Date: 20050323
  Receipt Date: 20050315
  Transmission Date: 20050727
  Serious: No
  Sender: FDA-Public Use
  Company Number: GB-BOEHRINGER INGELHEIM PHARMACEUTICALS, INC.-2005-BP-04391RO

PATIENT
  Age: 75 Year
  Sex: Male

DRUGS (7)
  1. METHOTREXATE [Suspect]
     Indication: RHEUMATOID ARTHRITIS
     Dosage: 2.5 MG/WEEK
     Route: 048
  2. METHOTREXATE [Suspect]
     Dosage: ORDERED 17.5 MG ONCE WEEKLY
     Route: 048
  3. PREDNISOLONE [Concomitant]
  4. LOSEC [Concomitant]
  5. ARTHROTEC [Concomitant]
  6. ACTONEL [Concomitant]
  7. FERROUS SULFATE TAB [Concomitant]

REACTIONS (2)
  - MEDICATION ERROR [None]
  - MOUTH ULCERATION [None]
